FAERS Safety Report 5238477-4 (Version None)
Quarter: 2007Q1

REPORT INFORMATION
  Report Type: 
  Country: None (occurrence: None)
  Receive Date: 20070215
  Receipt Date: 20070208
  Transmission Date: 20070707
  Serious: Yes (Other)
  Sender: FDA-Public Use
  Company Number: 2007AC00228

PATIENT

DRUGS (4)
  1. SEROQUEL [Suspect]
     Indication: SCHIZOPHRENIA
     Route: 048
  2. REMERON [Concomitant]
  3. SERTRALINE [Concomitant]
  4. DORMICUM [Concomitant]

REACTIONS (1)
  - HEPATIC FUNCTION ABNORMAL [None]
